FAERS Safety Report 5420635-7 (Version None)
Quarter: 2007Q3

REPORT INFORMATION
  Report Type: 
  Country: None (occurrence: None)
  Receive Date: 20070816
  Receipt Date: 20070806
  Transmission Date: 20080115
  Serious: No
  Sender: FDA-Public Use
  Company Number: TPA2007A01657

PATIENT
  Age: 2 Decade
  Sex: Female

DRUGS (2)
  1. ROZEREM [Suspect]
     Dosage: 1/2 TABLET, HS,  PER ORAL
     Route: 048
     Dates: start: 20070101, end: 20070101
  2. KLONOPIN [Concomitant]

REACTIONS (1)
  - MUSCLE SPASMS [None]
